FAERS Safety Report 6338278-X (Version None)
Quarter: 2009Q3

REPORT INFORMATION
  Report Type: 
  Country: None (occurrence: None)
  Receive Date: 20090902
  Receipt Date: 20090712
  Transmission Date: 20100115
  Serious: Yes (Other)
  Sender: FDA-Public Use
  Company Number: GR-WYE-G03325709

PATIENT
  Age: 65 Year
  Sex: Female

DRUGS (9)
  1. TYGACIL [Suspect]
     Indication: MEDIASTINITIS
     Route: 042
     Dates: start: 20090203, end: 20090214
  2. TYGACIL [Suspect]
     Indication: OSTEOMYELITIS
  3. ZYVOXID [Concomitant]
     Route: 048
  4. AZACTAM [Concomitant]
     Dosage: 6 GR DAILY
     Route: 042
     Dates: start: 20090215, end: 20090219
  5. ECALTA [Concomitant]
     Dosage: 100 MG DAILY
     Route: 042
     Dates: start: 20090216, end: 20090305
  6. MERONEM [Concomitant]
     Dosage: 6 GR DAILY
     Route: 042
     Dates: start: 20090219, end: 20090306
  7. VONCON [Concomitant]
     Dosage: 1 GR DAILY
     Route: 042
     Dates: start: 20090215, end: 20090306
  8. COLISTIN SULFATE [Suspect]
     Dosage: 2 X 1,000,000 UNITS THREE TIMES DAILY
     Route: 042
     Dates: start: 20090203, end: 20090306
  9. FUNGUSTATIN [Concomitant]
     Dosage: 400MG  DAILY
     Route: 042
     Dates: start: 20090130, end: 20090216

REACTIONS (2)
  - HEPATIC ENZYME INCREASED [None]
  - PIGMENTATION DISORDER [None]
